FAERS Safety Report 19971729 (Version 1)
Quarter: 2021Q4

REPORT INFORMATION
  Report Type: Other
  Country: US (occurrence: US)
  Receive Date: 20211020
  Receipt Date: 20211020
  Transmission Date: 20220303
  Serious: Yes (Hospitalization)
  Sender: FDA-Public Use
  Company Number: US-INTERCEPT-PM2021002680

PATIENT
  Age: 48 Year
  Sex: Female

DRUGS (4)
  1. OCALIVA [Suspect]
     Active Substance: OBETICHOLIC ACID
     Indication: Primary biliary cholangitis
     Dosage: 5 MILLIGRAM, QD
     Route: 048
     Dates: start: 20200208, end: 202108
  2. OCALIVA [Suspect]
     Active Substance: OBETICHOLIC ACID
     Dosage: 5 MILLIGRAM, QD
     Route: 048
  3. ACTIGALL [Concomitant]
     Active Substance: URSODIOL
     Dosage: 600 MILLIGRAM, TID
     Dates: start: 201808
  4. ACTIGALL [Concomitant]
     Active Substance: URSODIOL
     Dosage: 1200 MILLIGRAM, QD
     Route: 048
     Dates: start: 202103

REACTIONS (1)
  - Cholecystectomy [Recovered/Resolved]

NARRATIVE: CASE EVENT DATE: 20210201
